FAERS Safety Report 4342096-1 (Version None)
Quarter: 2004Q1

REPORT INFORMATION
  Report Type: 
  Country: None (occurrence: None)
  Receive Date: 20040329
  Receipt Date: 20031223
  Transmission Date: 20041129
  Serious: No
  Sender: FDA-Public Use
  Company Number: 03P-163-0245532-00

PATIENT
  Age: 53 Year
  Sex: Female

DRUGS (12)
  1. HUMIRA [Suspect]
     Dosage: 40 MG, 1 IN 2 WK, SUBCUTANEOUS
     Route: 058
     Dates: start: 20031202
  2. FUROSEMIDE [Concomitant]
  3. METOLAZONE [Concomitant]
  4. PROPRANOLOL HYDROCHLORIDE [Concomitant]
  5. GABAPENTIN [Concomitant]
  6. FOLIC ACID [Concomitant]
  7. PROPACET 100 [Concomitant]
  8. METHOTREXATE [Concomitant]
  9. AMLODIPINE BESYLATE [Concomitant]
  10. COENZYME Q10 [Concomitant]
  11. POTASSIUM [Concomitant]
  12. DIPHENHYDRAMINE HCL [Concomitant]

REACTIONS (6)
  - ABDOMINAL DISTENSION [None]
  - BACK PAIN [None]
  - DRY THROAT [None]
  - GASTROINTESTINAL PAIN [None]
  - MYALGIA [None]
  - NAUSEA [None]
